FAERS Safety Report 7772723-8 (Version None)
Quarter: 2011Q3

REPORT INFORMATION
  Report Type: 
  Country: None (occurrence: None)
  Receive Date: 20110922
  Receipt Date: 20110627
  Transmission Date: 20111222
  Serious: No
  Sender: FDA-Public Use
  Company Number: US-ASTRAZENECA-2011SE38510

PATIENT
  Age: 54 Year
  Sex: Male

DRUGS (3)
  1. LORAZEPAM [Concomitant]
  2. SEROQUEL [Suspect]
     Indication: SLEEP DISORDER
     Route: 048
  3. METHADONE HCL [Concomitant]

REACTIONS (1)
  - DRUG SCREEN POSITIVE [None]
